FAERS Safety Report 19415458 (Version 1)
Quarter: 2021Q2

REPORT INFORMATION
  Report Type: Spontaneous
  Country: US (occurrence: US)
  Receive Date: 20210614
  Receipt Date: 20210614
  Transmission Date: 20210717
  Serious: Yes (Death, Hospitalization)
  Sender: FDA-Public Use
  Company Number: None

PATIENT
  Age: 95 Year
  Sex: Male
  Weight: 70 kg

DRUGS (3)
  1. XARELTO [Suspect]
     Active Substance: RIVAROXABAN
     Indication: EMBOLISM VENOUS
     Route: 048
     Dates: start: 20210516, end: 20210525
  2. XARELTO [Concomitant]
     Active Substance: RIVAROXABAN
     Dates: start: 20210516, end: 20210525
  3. XARELTO [Suspect]
     Active Substance: RIVAROXABAN
     Indication: ATRIAL FIBRILLATION
     Route: 048
     Dates: start: 20210516, end: 20210525

REACTIONS (7)
  - Haemorrhage [None]
  - Restlessness [None]
  - Bradycardia [None]
  - Haemoptysis [None]
  - Nausea [None]
  - Epistaxis [None]
  - Contusion [None]

NARRATIVE: CASE EVENT DATE: 20210525
